FAERS Safety Report 4406609-3 (Version None)
Quarter: 2004Q3

REPORT INFORMATION
  Report Type: 
  Country: None (occurrence: None)
  Receive Date: 20040723
  Receipt Date: 20040607
  Transmission Date: 20050211
  Serious: Yes (Other)
  Sender: FDA-Public Use
  Company Number: 2004010263

PATIENT
  Age: 10 Year
  Sex: Female
  Weight: 35 kg

DRUGS (5)
  1. IMIGRAN [Suspect]
     Dosage: 100MG SINGLE DOSE
     Route: 048
     Dates: start: 20040604
  2. MUSARIL [Suspect]
     Dosage: 500MG SINGLE DOSE
     Route: 048
     Dates: start: 20040604
  3. GELONIDA [Suspect]
     Dosage: 4TAB SINGLE DOSE
     Route: 048
     Dates: start: 20040604
  4. VOLTAREN [Suspect]
     Dosage: 250MG SINGLE DOSE
     Route: 048
     Dates: start: 20040604
  5. MINISISTON [Suspect]
     Dosage: 2TAB SINGLE DOSE
     Route: 048
     Dates: start: 20040604

REACTIONS (6)
  - ABDOMINAL PAIN UPPER [None]
  - ACCIDENTAL OVERDOSE [None]
  - MIOSIS [None]
  - SOMNOLENCE [None]
  - SUICIDE ATTEMPT [None]
  - VOMITING [None]
